FAERS Safety Report 5446385-9 (Version None)
Quarter: 2007Q3

REPORT INFORMATION
  Report Type: 
  Country: None (occurrence: None)
  Receive Date: 20070907
  Receipt Date: 20070831
  Transmission Date: 20080115
  Serious: Yes (Other)
  Sender: FDA-Public Use
  Company Number: B0486080A

PATIENT
  Age: 68 Year
  Sex: Female

DRUGS (3)
  1. LAMOTRIGINE [Suspect]
     Indication: EPILEPSY
     Dosage: 25MG TWICE PER DAY
     Route: 048
     Dates: start: 20070606, end: 20070723
  2. EPILIM [Concomitant]
     Indication: EPILEPSY
     Route: 065
     Dates: start: 20060701
  3. PREGABALIN [Concomitant]
     Indication: EPILEPSY
     Dosage: 150MG FOUR TIMES PER DAY
     Route: 048
     Dates: start: 20060728

REACTIONS (3)
  - LEUKOCYTOSIS [None]
  - RASH GENERALISED [None]
  - SHIFT TO THE LEFT [None]
